FAERS Safety Report 8969831 (Version 1)
Quarter: 2012Q4

REPORT INFORMATION
  Report Type: 
  Country: ES (occurrence: ES)
  Receive Date: 20121218
  Receipt Date: 20121218
  Transmission Date: 20130627
  Serious: Yes (Life-Threatening, Other)
  Sender: FDA-Public Use
  Company Number: ES-B.I. PHARMACEUTICALS,INC./RIDGEFIELD-2012-ES-00491ES

PATIENT
  Age: 86 Year
  Sex: Male

DRUGS (4)
  1. PRADAXA [Suspect]
     Indication: ATRIAL FIBRILLATION
     Dosage: 220 mg
     Route: 048
     Dates: start: 20120531
  2. DIGOXINA [Concomitant]
     Dosage: 1.25 mg
     Route: 048
  3. CRESTOR [Concomitant]
     Dosage: 10 mg
     Route: 048
  4. MASDIL [Concomitant]
     Dosage: 120 mg
     Route: 048

REACTIONS (1)
  - Embolic stroke [Recovered/Resolved with Sequelae]
